FAERS Safety Report 4802449-1 (Version None)
Quarter: 2005Q4

REPORT INFORMATION
  Report Type: 
  Country: None (occurrence: None)
  Receive Date: 20051011
  Receipt Date: 20050929
  Transmission Date: 20060501
  Serious: Yes (Other)
  Sender: FDA-Public Use
  Company Number: 2005080937

PATIENT
  Sex: Female
  Weight: 63.5036 kg

DRUGS (5)
  1. CELEBREX [Suspect]
     Indication: RHEUMATOID ARTHRITIS
     Dosage: 400 MG (200 MG, 2 IN 1 D), ORAL
     Route: 048
  2. TYLENOL W/ CODEINE NO. 3 [Concomitant]
  3. PREMARIN [Concomitant]
  4. AMBIEN [Concomitant]
  5. PREDNISONE [Concomitant]

REACTIONS (6)
  - DIARRHOEA [None]
  - FOOT OPERATION [None]
  - LIMB OPERATION [None]
  - PAIN [None]
  - SHOULDER OPERATION [None]
  - TOE OPERATION [None]
